FAERS Safety Report 24107361 (Version 2)
Quarter: 2024Q3

REPORT INFORMATION
  Report Type: Spontaneous
  Country: US (occurrence: US)
  Receive Date: 20240718
  Receipt Date: 20240903
  Transmission Date: 20241017
  Serious: Yes (Other)
  Sender: SANDOZ
  Company Number: US-002147023-NVSC2023US170609

PATIENT
  Weight: 92.99 kg

DRUGS (2)
  1. COSENTYX [Suspect]
     Active Substance: SECUKINUMAB
     Indication: Psoriasis
     Dosage: UNK
     Route: 065
     Dates: start: 20230123
  2. METHOTREXATE [Suspect]
     Active Substance: METHOTREXATE
     Indication: Psoriatic arthropathy
     Dosage: UNK
     Route: 065
     Dates: start: 20221229

REACTIONS (52)
  - Polyarthritis [Unknown]
  - Eye pruritus [Unknown]
  - Tinnitus [Unknown]
  - Dysphonia [Unknown]
  - Gingival bleeding [Unknown]
  - Constipation [Unknown]
  - Musculoskeletal pain [Unknown]
  - Swelling [Unknown]
  - Nervousness [Unknown]
  - Affect lability [Unknown]
  - Sleep disorder [Unknown]
  - Inflammatory marker increased [Unknown]
  - Somnolence [Unknown]
  - Anhedonia [Unknown]
  - Decreased interest [Unknown]
  - Feeling guilty [Unknown]
  - Tachyphrenia [Unknown]
  - Insomnia [Unknown]
  - Muscular weakness [Unknown]
  - Libido disorder [Unknown]
  - Trichorrhexis [Unknown]
  - Dyspepsia [Unknown]
  - Pain [Unknown]
  - Restless legs syndrome [Unknown]
  - Skin texture abnormal [Unknown]
  - Milk allergy [Unknown]
  - Tenderness [Unknown]
  - Osteoarthritis [Unknown]
  - Vitamin D deficiency [Unknown]
  - Migraine [Unknown]
  - Back pain [Unknown]
  - Dry skin [Unknown]
  - Drug intolerance [Unknown]
  - Weight increased [Unknown]
  - Herpes zoster [Unknown]
  - Headache [Unknown]
  - Acne [Unknown]
  - Arthralgia [Unknown]
  - Pruritus [Unknown]
  - Skin exfoliation [Unknown]
  - Photosensitivity reaction [Unknown]
  - Hypoaesthesia [Unknown]
  - Paraesthesia [Unknown]
  - Myalgia [Unknown]
  - Hyperhidrosis [Unknown]
  - Alopecia [Unknown]
  - Treatment failure [Unknown]
  - Musculoskeletal stiffness [Unknown]
  - Paranasal sinus discomfort [Unknown]
  - Sinus pain [Unknown]
  - Vitreous floaters [Unknown]
  - Drug ineffective [Unknown]
